FAERS Safety Report 7419853-8 (Version None)
Quarter: 2011Q2

REPORT INFORMATION
  Report Type: 
  Country: None (occurrence: None)
  Receive Date: 20110418
  Receipt Date: 20110405
  Transmission Date: 20111010
  Serious: Yes (Hospitalization, Other)
  Sender: FDA-Public Use
  Company Number: CA-JNJFOC-20110401723

PATIENT
  Age: 46 Year
  Sex: Female

DRUGS (2)
  1. INVEGA [Suspect]
     Route: 048
     Dates: start: 20101101
  2. INVEGA [Suspect]
     Indication: PRODUCT USED FOR UNKNOWN INDICATION
     Route: 048
     Dates: start: 20101101

REACTIONS (5)
  - DEPRESSION [None]
  - HOSPITALISATION [None]
  - PARANOIA [None]
  - PRODUCT COLOUR ISSUE [None]
  - ANXIETY [None]
